FAERS Safety Report 9166123 (Version 2)
Quarter: 2013Q3

REPORT INFORMATION
  Report Type: Spontaneous
  Country: US (occurrence: US)
  Receive Date: 20130315
  Receipt Date: 20130731
  Transmission Date: 20140515
  Serious: No
  Sender: FDA-Public Use
  Company Number: US-PFIZER INC-2013084732

PATIENT
  Age: 75 Year
  Sex: Female
  Weight: 136.5 kg

DRUGS (5)
  1. LYRICA [Suspect]
     Indication: PAIN IN EXTREMITY
     Dosage: 25 MG, 2X/DAY
     Route: 048
  2. LYRICA [Suspect]
     Indication: NECK PAIN
  3. TRAMADOL [Concomitant]
     Dosage: UNK
  4. ASPIRIN [Concomitant]
     Indication: ANTICOAGULANT THERAPY
     Dosage: 1X/DAY  (HIGH DOSE)
  5. IBUPROFEN [Concomitant]
     Dosage: UNK

REACTIONS (7)
  - Pain in extremity [Unknown]
  - Musculoskeletal pain [Unknown]
  - Neck pain [Unknown]
  - Oedema peripheral [Unknown]
  - Weight increased [Unknown]
  - Vision blurred [Unknown]
  - Gait disturbance [Unknown]
